FAERS Safety Report 10486115 (Version 1)
Quarter: 2014Q3

REPORT INFORMATION
  Report Type: Spontaneous
  Country: US (occurrence: None)
  Receive Date: 20140929
  Receipt Date: 20140929
  Transmission Date: 20150326
  Serious: Yes (Hospitalization, Other)
  Sender: FDA-Public Use
  Company Number: ADR-2014-01760

PATIENT
  Age: 29 Year
  Sex: Female

DRUGS (3)
  1. CAFFEINE. [Concomitant]
     Active Substance: CAFFEINE
  2. BACLOFEN. [Suspect]
     Active Substance: BACLOFEN
     Route: 048
  3. KETAMINE [Suspect]
     Active Substance: KETAMINE
     Route: 048

REACTIONS (15)
  - Seizure like phenomena [None]
  - Mental status changes [None]
  - Drug screen positive [None]
  - Dissociation [None]
  - Coma [None]
  - Incorrect route of drug administration [None]
  - Metabolic acidosis [None]
  - Neurotoxicity [None]
  - Toxic encephalopathy [None]
  - Accidental overdose [None]
  - Toxicity to various agents [None]
  - Tremor [None]
  - Myoclonus [None]
  - Metabolic encephalopathy [None]
  - Nodal arrhythmia [None]

NARRATIVE: CASE EVENT DATE: 20140101
